FAERS Safety Report 11763857 (Version 1)
Quarter: 2015Q4

REPORT INFORMATION
  Report Type: Spontaneous
  Country: US (occurrence: US)
  Receive Date: 20151120
  Receipt Date: 20151120
  Transmission Date: 20160304
  Serious: No
  Sender: FDA-Public Use
  Company Number: US-ELI_LILLY_AND_COMPANY-US201304007147

PATIENT
  Age: 70 Year
  Sex: Female

DRUGS (1)
  1. FORTEO [Suspect]
     Active Substance: TERIPARATIDE
     Indication: BONE DISORDER
     Dosage: UNK, QD
     Route: 065
     Dates: start: 20130320

REACTIONS (4)
  - Fatigue [Unknown]
  - Influenza [Unknown]
  - Nausea [Unknown]
  - Sleep disorder due to general medical condition, hypersomnia type [Unknown]
